FAERS Safety Report 8799887 (Version 2)
Quarter: 2013Q4

REPORT INFORMATION
  Report Type: Spontaneous
  Country: US (occurrence: US)
  Receive Date: 20120919
  Receipt Date: 20131101
  Transmission Date: 20140711
  Serious: No
  Sender: FDA-Public Use
  Company Number: US-009507513-1209USA005781

PATIENT
  Age: 30 Year
  Sex: Female

DRUGS (1)
  1. IMPLANON [Suspect]
     Dosage: 1 DF, UNK
     Route: 059

REACTIONS (1)
  - Polymenorrhoea [Unknown]
